FAERS Safety Report 5927508-1 (Version None)
Quarter: 2008Q4

REPORT INFORMATION
  Report Type: 
  Country: None (occurrence: None)
  Receive Date: 20081021
  Receipt Date: 20081021
  Transmission Date: 20090506
  Serious: No
  Sender: FDA-Public Use
  Company Number: None

PATIENT
  Sex: Female
  Weight: 118.1 kg

DRUGS (3)
  1. FLUOROURACIL [Suspect]
     Dosage: 1075 MG
     Dates: end: 20081009
  2. CYCLOPHOSPHAMIDE [Suspect]
     Dosage: 1075 MG
     Dates: end: 20081009
  3. ELLENCE [Suspect]
     Dosage: 216 MG
     Dates: end: 20081009

REACTIONS (1)
  - SUDDEN DEATH [None]
